FAERS Safety Report 17198094 (Version 1)
Quarter: 2019Q4

REPORT INFORMATION
  Report Type: Spontaneous
  Country: CN (occurrence: CN)
  Receive Date: 20191225
  Receipt Date: 20191225
  Transmission Date: 20200122
  Serious: Yes (Hospitalization, Other)
  Sender: FDA-Public Use
  Company Number: CN-JIANGSU HENGRUI MEDICINE CO., LTD.-2078174

PATIENT
  Age: 62 Year
  Sex: Male
  Weight: 70 kg

DRUGS (3)
  1. OXALIPLATIN. [Suspect]
     Active Substance: OXALIPLATIN
     Route: 041
     Dates: start: 20191202, end: 20191202
  2. IRINOTECAN HYDROCHLORIDE INJECTION, 20 MG/ML (2 ML AND 5 ML VIALS) (AN [Suspect]
     Active Substance: IRINOTECAN HYDROCHLORIDE
     Indication: GASTROINTESTINAL CARCINOMA
     Route: 041
     Dates: start: 20191107, end: 20191107
  3. CAMRELIZUMAB FOR INJECTION [Suspect]
     Active Substance: CAMRELIZUMAB
     Route: 041
     Dates: start: 20191107, end: 20191107

REACTIONS (8)
  - Asthenia [Recovering/Resolving]
  - Hepatic enzyme increased [Unknown]
  - Neutrophil count increased [Unknown]
  - Product use in unapproved indication [Unknown]
  - Eyelid disorder [Recovering/Resolving]
  - Chest discomfort [Recovering/Resolving]
  - Myocardial necrosis marker increased [Unknown]
  - White blood cell count increased [Unknown]

NARRATIVE: CASE EVENT DATE: 20191107
